FAERS Safety Report 23424202 (Version 1)
Quarter: 2024Q1

REPORT INFORMATION
  Report Type: Spontaneous
  Country: US (occurrence: US)
  Receive Date: 20240120
  Receipt Date: 20240120
  Transmission Date: 20240409
  Serious: Yes (Life-Threatening, Hospitalization)
  Sender: FDA-Public Use
  Company Number: US-TEVA-VS-3147047

PATIENT
  Age: 38 Year

DRUGS (6)
  1. PROPRANOLOL [Suspect]
     Active Substance: PROPRANOLOL HYDROCHLORIDE
     Indication: Tachyarrhythmia
     Route: 065
  2. PROPRANOLOL [Suspect]
     Active Substance: PROPRANOLOL HYDROCHLORIDE
     Indication: Tachyarrhythmia
     Dosage: TIME INTERVAL: 0.33333333 DAYS: THREE TIMES A DAY
     Route: 065
  3. DILTIAZEM [Suspect]
     Active Substance: DILTIAZEM
     Indication: Tachyarrhythmia
     Dosage: FOUR TIME A DAY
     Route: 065
  4. CHOLESTYRAMINE [Suspect]
     Active Substance: CHOLESTYRAMINE
     Indication: Graves^ disease
     Route: 065
  5. METHIMAZOLE [Suspect]
     Active Substance: METHIMAZOLE
     Indication: Graves^ disease
     Route: 065
  6. POTASSIUM IODIDE [Suspect]
     Active Substance: POTASSIUM IODIDE
     Indication: Graves^ disease
     Dosage: 3 DROPS 3 TIMES A DAY
     Route: 065

REACTIONS (1)
  - Drug ineffective [Unknown]
